FAERS Safety Report 9351951 (Version 1)
Quarter: 2013Q2

REPORT INFORMATION
  Report Type: Spontaneous
  Country: US (occurrence: US)
  Receive Date: 20130617
  Receipt Date: 20130617
  Transmission Date: 20140414
  Serious: No
  Sender: FDA-Public Use
  Company Number: US-BIOGENIDEC-2013BI053191

PATIENT
  Age: 22 Year
  Sex: Female

DRUGS (1)
  1. TYSABRI [Suspect]
     Indication: MULTIPLE SCLEROSIS
     Route: 042
     Dates: start: 20130125, end: 20130125

REACTIONS (5)
  - Overweight [Not Recovered/Not Resolved]
  - Gait disturbance [Not Recovered/Not Resolved]
  - Memory impairment [Not Recovered/Not Resolved]
  - General symptom [Unknown]
  - Multiple sclerosis [Unknown]
